FAERS Safety Report 5494608-2 (Version None)
Quarter: 2007Q4

REPORT INFORMATION
  Report Type: 
  Country: None (occurrence: None)
  Receive Date: 20071015
  Receipt Date: 20070820
  Transmission Date: 20080405
  Serious: No
  Sender: FDA-Public Use
  Company Number: 2007SP002908

PATIENT
  Age: 29 Year
  Sex: Female
  Weight: 83.9154 kg

DRUGS (9)
  1. LUNESTA [Suspect]
     Indication: INSOMNIA
     Dosage: 2 MG; PRN; ORAL, 6 MG; PRN; ORAL, 8 MG; PRN; ORAL, 4 MG; PRN; ORAL
     Route: 048
     Dates: start: 20070101, end: 20070101
  2. LUNESTA [Suspect]
     Indication: INSOMNIA
     Dosage: 2 MG; PRN; ORAL, 6 MG; PRN; ORAL, 8 MG; PRN; ORAL, 4 MG; PRN; ORAL
     Route: 048
     Dates: start: 20070801, end: 20070801
  3. LUNESTA [Suspect]
     Indication: INSOMNIA
     Dosage: 2 MG; PRN; ORAL, 6 MG; PRN; ORAL, 8 MG; PRN; ORAL, 4 MG; PRN; ORAL
     Route: 048
     Dates: start: 20070601
  4. LUNESTA [Suspect]
     Indication: INSOMNIA
     Dosage: 2 MG; PRN; ORAL, 6 MG; PRN; ORAL, 8 MG; PRN; ORAL, 4 MG; PRN; ORAL
     Route: 048
     Dates: start: 20070801
  5. EFFEXOR [Concomitant]
  6. ZONEGRAN [Concomitant]
  7. ATENOLOL [Concomitant]
  8. TYLENOL [Concomitant]
  9. ORAL CONTRACEPTIVE NOS [Concomitant]

REACTIONS (1)
  - INITIAL INSOMNIA [None]
